FAERS Safety Report 7833980-2 (Version None)
Quarter: 2011Q4

REPORT INFORMATION
  Report Type: 
  Country: None (occurrence: None)
  Receive Date: 20111024
  Receipt Date: 20111012
  Transmission Date: 20120403
  Serious: Yes (Hospitalization)
  Sender: FDA-Public Use
  Company Number: DE-JNJFOC-20110709076

PATIENT
  Sex: Female
  Weight: 110 kg

DRUGS (11)
  1. RISPERDAL CONSTA [Suspect]
     Indication: SCHIZOAFFECTIVE DISORDER
     Route: 030
     Dates: start: 20050707
  2. LEVEMIR [Concomitant]
     Route: 065
  3. SIMVABETA [Concomitant]
     Route: 065
  4. RISPERIDONE [Concomitant]
     Route: 048
  5. NIFEDIPINE [Concomitant]
     Route: 065
  6. METFORMIN HCL [Concomitant]
     Route: 065
  7. NOVORAPID [Concomitant]
     Route: 065
  8. VICTOZA [Concomitant]
     Indication: DIABETES MELLITUS
     Route: 065
  9. RISPERDAL CONSTA [Suspect]
     Route: 030
     Dates: start: 20100302
  10. HYDROCHLOROTHIAZID [Concomitant]
     Route: 065
  11. ENALAPRIL MALEATE [Concomitant]
     Route: 065

REACTIONS (4)
  - HOSPITALISATION [None]
  - PSYCHOTIC DISORDER [None]
  - BLOOD GLUCOSE INCREASED [None]
  - DRUG LEVEL DECREASED [None]
